FAERS Safety Report 6235996-9 (Version None)
Quarter: 2009Q2

REPORT INFORMATION
  Report Type: 
  Country: None (occurrence: None)
  Receive Date: 20090619
  Receipt Date: 20090609
  Transmission Date: 20091009
  Serious: Yes (Other)
  Sender: FDA-Public Use
  Company Number: US-BAYER-200920471NA

PATIENT
  Age: 43 Year
  Sex: Female
  Weight: 82 kg

DRUGS (7)
  1. MAGNEVIST [Suspect]
     Indication: NUCLEAR MAGNETIC RESONANCE IMAGING
     Dosage: TOTAL DAILY DOSE: 10 ML
     Route: 042
     Dates: start: 20090430, end: 20090430
  2. CYCLOBENZAPRINE HCL [Concomitant]
     Dosage: TOTAL DAILY DOSE: 20 MG
     Route: 048
  3. FLUOXETINE HCL [Concomitant]
     Dosage: TOTAL DAILY DOSE: 20 MG
     Route: 048
  4. HYDROXYZINE PAMOATE [Concomitant]
     Dosage: TOTAL DAILY DOSE: 150 MG
     Route: 048
  5. ROBAXIN [Concomitant]
     Dosage: 1 TAB EVERY 6 HRS PRN FOR SPASMS
     Route: 048
     Dates: start: 20080603
  6. IBUPROFEN [Concomitant]
     Dosage: 1 TAB EVERY 8 HRS PRN
     Route: 048
     Dates: start: 20080603
  7. NEURONTIN [Concomitant]
     Dosage: INCREASE AS DIRECTED TO 2 PO TID
     Route: 048

REACTIONS (8)
  - BURNING SENSATION [None]
  - CHEST PAIN [None]
  - CONTRAST MEDIA ALLERGY [None]
  - DYSPNOEA [None]
  - FEELING COLD [None]
  - NAUSEA [None]
  - TREMOR [None]
  - VOMITING [None]
